FAERS Safety Report 22170748 (Version 2)
Quarter: 2023Q2

REPORT INFORMATION
  Report Type: Spontaneous
  Country: US (occurrence: US)
  Receive Date: 20230404
  Receipt Date: 20230406
  Transmission Date: 20230722
  Serious: No
  Sender: FDA-Public Use
  Company Number: US-GLAXOSMITHKLINE-USCH2023014426

PATIENT

DRUGS (1)
  1. ALLI [Suspect]
     Active Substance: ORLISTAT
     Indication: Product used for unknown indication
     Dosage: UNK
     Dates: start: 20230325, end: 20230327

REACTIONS (3)
  - Diarrhoea [Recovered/Resolved]
  - Incontinence [Recovered/Resolved]
  - Rectal discharge [Recovered/Resolved]

NARRATIVE: CASE EVENT DATE: 20230325
